FAERS Safety Report 14831910 (Version 4)
Quarter: 2019Q1

REPORT INFORMATION
  Report Type: Report from Study
  Country: BR (occurrence: BR)
  Receive Date: 20180501
  Receipt Date: 20190304
  Transmission Date: 20190417
  Serious: Yes (Hospitalization, Other)
  Sender: FDA-Public Use
  Company Number: PHHY2017BR120766

PATIENT
  Age: 68 Year
  Sex: Female
  Weight: 51 kg

DRUGS (6)
  1. FORASEQ [Suspect]
     Active Substance: BUDESONIDE\FORMOTEROL FUMARATE
     Indication: ASTHMA
     Dosage: UNK UNK, BID
     Route: 055
  2. METICORTEN [Concomitant]
     Active Substance: PREDNISONE
     Indication: PRODUCT USED FOR UNKNOWN INDICATION
     Route: 065
  3. OMEPRAZOLE. [Concomitant]
     Active Substance: OMEPRAZOLE
     Indication: GASTRITIS PROPHYLAXIS
     Dosage: 1 DF, QD (STARTED 50 YEARS AGO)
     Route: 048
  4. XOLAIR [Suspect]
     Active Substance: OMALIZUMAB
     Indication: BRONCHITIS
     Dosage: 300 MG, UNK
     Route: 058
  5. XOLAIR [Suspect]
     Active Substance: OMALIZUMAB
     Indication: PNEUMONIA
     Dosage: 300 MG, EVERY 4 WEEKS
     Route: 058
     Dates: start: 20190208
  6. XOLAIR [Suspect]
     Active Substance: OMALIZUMAB
     Indication: ASTHMA
     Dosage: 2 DF, QMO (STARTED 12 YEARS AGO)
     Route: 058
     Dates: start: 2006, end: 201611

REACTIONS (15)
  - Malaise [Recovered/Resolved]
  - Lung disorder [Unknown]
  - Fall [Unknown]
  - Gait disturbance [Unknown]
  - Influenza [Recovered/Resolved]
  - Dyspnoea [Recovered/Resolved]
  - Pneumonia [Recovered/Resolved]
  - Bronchitis [Not Recovered/Not Resolved]
  - Chest pain [Recovered/Resolved]
  - Pain [Recovering/Resolving]
  - Dysstasia [Unknown]
  - Asthma [Not Recovered/Not Resolved]
  - Productive cough [Recovering/Resolving]
  - Product use in unapproved indication [Unknown]
  - Cough [Recovered/Resolved]

NARRATIVE: CASE EVENT DATE: 201611
